FAERS Safety Report 19091764 (Version 2)
Quarter: 2023Q2

REPORT INFORMATION
  Report Type: Report from Study
  Country: JP (occurrence: JP)
  Receive Date: 20210405
  Receipt Date: 20230628
  Transmission Date: 20230721
  Serious: Yes (Life-Threatening, Other)
  Sender: FDA-Public Use
  Company Number: JP-EMA-DD-20171212-FAIZANEVPROD-104558

PATIENT
  Age: 48 Year
  Sex: Male
  Weight: 67 kg

DRUGS (5)
  1. MELPHALAN [Suspect]
     Active Substance: MELPHALAN
     Indication: Neoplasm prophylaxis
     Dosage: 70 MG/M2
     Route: 041
  2. CYTARABINE [Suspect]
     Active Substance: CYTARABINE
     Indication: Neoplasm prophylaxis
     Dosage: 200 MG/M2
     Route: 041
  3. RANIMUSTINE [Suspect]
     Active Substance: RANIMUSTINE
     Indication: Neoplasm prophylaxis
     Dosage: 300 MG/M2
     Route: 041
  4. ETOPOSIDE [Suspect]
     Active Substance: ETOPOSIDE
     Indication: Neoplasm prophylaxis
     Dosage: 200 MG/M2
     Route: 041
  5. RITUXIMAB [Suspect]
     Active Substance: RITUXIMAB
     Indication: Neoplasm prophylaxis
     Dosage: 375 MG/M2
     Route: 041

REACTIONS (5)
  - Anaemia [Unknown]
  - Leukopenia [Recovered/Resolved]
  - Thrombocytopenia [Recovered/Resolved]
  - Febrile neutropenia [Recovering/Resolving]
  - Off label use [Unknown]
